FAERS Safety Report 6172623-3 (Version None)
Quarter: 2009Q2

REPORT INFORMATION
  Report Type: 
  Country: None (occurrence: None)
  Receive Date: 20090430
  Receipt Date: 20081224
  Transmission Date: 20091009
  Serious: Yes (Hospitalization)
  Sender: FDA-Public Use
  Company Number: DE-ELI_LILLY_AND_COMPANY-DE200812005861

PATIENT
  Sex: Male

DRUGS (2)
  1. ZYPREXA [Suspect]
  2. LEPONEX [Concomitant]

REACTIONS (2)
  - GENERAL PHYSICAL HEALTH DETERIORATION [None]
  - OVERDOSE [None]
